FAERS Safety Report 8436700-6 (Version None)
Quarter: 2012Q2

REPORT INFORMATION
  Report Type: 
  Country: None (occurrence: None)
  Receive Date: 20120608
  Receipt Date: 20120608
  Transmission Date: 20120825
  Serious: Yes (Other)
  Sender: FDA-Public Use
  Company Number: None

PATIENT
  Age: 79 Year
  Sex: Female
  Weight: 39.9165 kg

DRUGS (1)
  1. QUINAPRIL [Suspect]
     Indication: HYPERTENSION
     Dosage: 20 MG 1 X TABLET
     Dates: start: 20120506, end: 20120509

REACTIONS (3)
  - PRODUCT QUALITY ISSUE [None]
  - THROAT TIGHTNESS [None]
  - DYSPHAGIA [None]
